FAERS Safety Report 22007762 (Version 3)
Quarter: 2023Q2

REPORT INFORMATION
  Report Type: Report from Study
  Country: IL (occurrence: IL)
  Receive Date: 20230218
  Receipt Date: 20230613
  Transmission Date: 20230722
  Serious: No
  Sender: FDA-Public Use
  Company Number: IL-JNJFOC-20220853269

PATIENT
  Age: 43 Year
  Sex: Female

DRUGS (18)
  1. ESKETAMINE [Suspect]
     Active Substance: ESKETAMINE
     Indication: Depression
     Dosage: 56 MG (2 DEVICES)
     Dates: start: 20220817, end: 20220817
  2. ESKETAMINE [Suspect]
     Active Substance: ESKETAMINE
     Dosage: 84 MG (3 DEVICES)
     Dates: start: 20220821, end: 20220821
  3. ESKETAMINE [Suspect]
     Active Substance: ESKETAMINE
     Dosage: 84 MG (3 DEVICES)
     Dates: start: 20220824, end: 20220824
  4. ESKETAMINE [Suspect]
     Active Substance: ESKETAMINE
     Dosage: 84 MG (3 DEVICES)
     Dates: start: 20220828, end: 20220828
  5. ESKETAMINE [Suspect]
     Active Substance: ESKETAMINE
     Dosage: 84 MG (3 DEVICES)
     Dates: start: 20220831, end: 20220831
  6. ESKETAMINE [Suspect]
     Active Substance: ESKETAMINE
     Dosage: 84 MG (3 DEVICES)
     Dates: start: 20220904, end: 20220904
  7. ESKETAMINE [Suspect]
     Active Substance: ESKETAMINE
     Dosage: 84 MG (3 DEVICES)
     Dates: start: 20220907, end: 20220907
  8. ESKETAMINE [Suspect]
     Active Substance: ESKETAMINE
     Dosage: 84 MG (3 DEVICES)
     Dates: start: 20220911, end: 20220911
  9. ESKETAMINE [Suspect]
     Active Substance: ESKETAMINE
     Dosage: 84 MG (3 DEVICES)
     Dates: start: 20220914, end: 20220914
  10. ESKETAMINE [Suspect]
     Active Substance: ESKETAMINE
     Dosage: 84 MG (3 DEVICES)
     Dates: start: 20220918, end: 20220918
  11. ESKETAMINE [Suspect]
     Active Substance: ESKETAMINE
     Dosage: 84 MG (3 DEVICES)
     Dates: start: 20220921, end: 20220921
  12. ESKETAMINE [Suspect]
     Active Substance: ESKETAMINE
     Dosage: 84 MG (3 DEVICES)
     Dates: start: 20220925, end: 20220925
  13. ESKETAMINE [Suspect]
     Active Substance: ESKETAMINE
     Dosage: 84 MG (3 DEVICES)
     Dates: start: 20220928, end: 20220928
  14. ESKETAMINE [Suspect]
     Active Substance: ESKETAMINE
     Dosage: 84 MG (3 DEVICES)
     Dates: start: 20221002, end: 20221002
  15. ESKETAMINE [Suspect]
     Active Substance: ESKETAMINE
     Dates: start: 20221006, end: 20221006
  16. ESKETAMINE [Suspect]
     Active Substance: ESKETAMINE
     Dates: start: 20221009, end: 20221009
  17. ESKETAMINE [Suspect]
     Active Substance: ESKETAMINE
     Dates: start: 20221012, end: 20221012
  18. ESKETAMINE [Suspect]
     Active Substance: ESKETAMINE
     Dates: start: 20221019, end: 20221019

REACTIONS (4)
  - Depression [Unknown]
  - Feeling abnormal [Recovered/Resolved]
  - Hypotension [Recovered/Resolved]
  - Drug ineffective [Unknown]

NARRATIVE: CASE EVENT DATE: 20220817
